FAERS Safety Report 7351433-5 (Version None)
Quarter: 2011Q1

REPORT INFORMATION
  Report Type: 
  Country: None (occurrence: None)
  Receive Date: 20110304
  Receipt Date: 20101112
  Transmission Date: 20110831
  Serious: Yes (Death)
  Sender: FDA-Public Use
  Company Number: JP-20100042

PATIENT
  Age: 74 Year
  Sex: Male

DRUGS (3)
  1. (LIPIODOL ULTRA FLUIDE) (ETHIODIZED OIL) [Suspect]
     Indication: THERAPEUTIC EMBOLISATION
     Dosage: INTRA-ARTERIAL
     Route: 013
  2. (TEGAFUR, GIMESTAT, OTASTAT POTASSIUM) (TEGAFUR, GIMESTAT, OTASTAT POT [Concomitant]
  3. (ETHANOL ABSOLUTE) [Suspect]
     Indication: PERCUTANEOUS ETHANOL INJECTION THERAPY
     Dosage: TRANSDERMAL
     Route: 062

REACTIONS (3)
  - NEOPLASM MALIGNANT [None]
  - TUMOUR RUPTURE [None]
  - HEPATIC NEOPLASM MALIGNANT [None]
